FAERS Safety Report 8906224 (Version 1)
Quarter: 2012Q4

REPORT INFORMATION
  Report Type: Spontaneous
  Country: US (occurrence: None)
  Receive Date: 20121106
  Receipt Date: 20121106
  Transmission Date: 20130627
  Serious: Yes (Other)
  Sender: FDA-Public Use
  Company Number: US-JNJFOC-20121014205

PATIENT
  Age: 63 Year
  Sex: Female

DRUGS (1)
  1. DACOGEN [Suspect]
     Indication: CHRONIC MYELOMONOCYTIC LEUKAEMIA
     Route: 042

REACTIONS (4)
  - Rash papular [None]
  - Leukaemia cutis [None]
  - Skin lesion [None]
  - Malignant histiocytosis [None]
